FAERS Safety Report 8142871-1 (Version None)
Quarter: 2012Q1

REPORT INFORMATION
  Report Type: 
  Country: None (occurrence: None)
  Receive Date: 20120217
  Receipt Date: 20120213
  Transmission Date: 20120608
  Serious: Yes (Life-Threatening)
  Sender: FDA-Public Use
  Company Number: US-BRISTOL-MYERS SQUIBB COMPANY-14963722

PATIENT
  Age: 82 Year
  Sex: Female
  Weight: 64 kg

DRUGS (4)
  1. PRAVACHOL [Suspect]
     Indication: LIPIDS INCREASED
     Dosage: AT NIGHT INCREASED TO 40MG AND THEN DECREASED TO 20MG
     Route: 048
  2. CLONIDINE [Suspect]
  3. COREG [Suspect]
  4. CARDIZEM SR [Suspect]

REACTIONS (3)
  - BURNING SENSATION [None]
  - CARDIAC ARREST [None]
  - PAIN [None]
